FAERS Safety Report 17911976 (Version 1)
Quarter: 2020Q2

REPORT INFORMATION
  Report Type: Spontaneous
  Country: US (occurrence: US)
  Receive Date: 20200618
  Receipt Date: 20200618
  Transmission Date: 20200714
  Serious: No
  Sender: FDA-Public Use
  Company Number: US-BIOGEN-2020BI00888371

PATIENT
  Sex: Female

DRUGS (12)
  1. NAPROXEN. [Concomitant]
     Active Substance: NAPROXEN
     Route: 065
  2. OCUVITE [Concomitant]
     Active Substance: VITAMINS
     Route: 065
  3. L-THEANINE [Concomitant]
     Active Substance: DIETARY SUPPLEMENT
     Route: 065
  4. BIOTIN [Concomitant]
     Active Substance: BIOTIN
     Route: 065
  5. TECFIDERA [Suspect]
     Active Substance: DIMETHYL FUMARATE
     Indication: MULTIPLE SCLEROSIS
     Dosage: TAKE 1 CAPSULE (240 MG) BY MOUTH TWICE A DAY
     Route: 048
     Dates: start: 201803
  6. TYLENOL [Concomitant]
     Active Substance: ACETAMINOPHEN
     Dosage: EXTRA STRENGTH
     Route: 065
  7. CETIRIZINE HCL [Concomitant]
     Active Substance: CETIRIZINE HYDROCHLORIDE
     Route: 065
  8. OMEPRAZOLE. [Concomitant]
     Active Substance: OMEPRAZOLE
     Route: 065
  9. ALIVE [Concomitant]
     Dosage: ALIVE ONCE DAILY WOMENS U
     Route: 065
  10. CALCIUM CARBONATE. [Concomitant]
     Active Substance: CALCIUM CARBONATE
     Route: 065
  11. IBUPROFEN. [Concomitant]
     Active Substance: IBUPROFEN
     Route: 065
  12. ALEVE [Concomitant]
     Active Substance: NAPROXEN SODIUM
     Route: 065

REACTIONS (1)
  - Dry eye [Unknown]
